FAERS Safety Report 24842124 (Version 2)
Quarter: 2025Q1

REPORT INFORMATION
  Report Type: Spontaneous
  Country: IT (occurrence: IT)
  Receive Date: 20250115
  Receipt Date: 20250118
  Transmission Date: 20250409
  Serious: Yes (Other)
  Sender: CELLTRION
  Company Number: IT-STADA-01263137

PATIENT

DRUGS (36)
  1. RITUXIMAB [Suspect]
     Active Substance: RITUXIMAB
     Indication: Burkitt^s lymphoma
     Route: 065
  2. DEXAMETHASONE [Interacting]
     Active Substance: DEXAMETHASONE
     Indication: Burkitt^s lymphoma
     Route: 065
  3. DEXAMETHASONE [Interacting]
     Active Substance: DEXAMETHASONE
     Route: 065
  4. DEXAMETHASONE [Interacting]
     Active Substance: DEXAMETHASONE
     Route: 065
  5. DEXAMETHASONE [Interacting]
     Active Substance: DEXAMETHASONE
     Route: 065
  6. DEXAMETHASONE [Interacting]
     Active Substance: DEXAMETHASONE
     Route: 065
  7. DEXAMETHASONE [Interacting]
     Active Substance: DEXAMETHASONE
     Route: 065
  8. METHOTREXATE [Interacting]
     Active Substance: METHOTREXATE
     Indication: Burkitt^s lymphoma
     Route: 065
  9. METHOTREXATE [Interacting]
     Active Substance: METHOTREXATE
  10. METHOTREXATE [Interacting]
     Active Substance: METHOTREXATE
  11. METHOTREXATE [Interacting]
     Active Substance: METHOTREXATE
  12. IFOSFAMIDE [Interacting]
     Active Substance: IFOSFAMIDE
     Indication: Burkitt^s lymphoma
     Route: 065
  13. IFOSFAMIDE [Interacting]
     Active Substance: IFOSFAMIDE
  14. IFOSFAMIDE [Interacting]
     Active Substance: IFOSFAMIDE
  15. CYTARABINE [Interacting]
     Active Substance: CYTARABINE
     Indication: Burkitt^s lymphoma
     Route: 065
  16. CYTARABINE [Interacting]
     Active Substance: CYTARABINE
     Route: 065
  17. CYTARABINE [Interacting]
     Active Substance: CYTARABINE
  18. CYTARABINE [Interacting]
     Active Substance: CYTARABINE
  19. CYTARABINE [Interacting]
     Active Substance: CYTARABINE
  20. ETOPOSIDE [Interacting]
     Active Substance: ETOPOSIDE
     Indication: Burkitt^s lymphoma
     Route: 065
  21. ETOPOSIDE [Interacting]
     Active Substance: ETOPOSIDE
  22. ETOPOSIDE [Interacting]
     Active Substance: ETOPOSIDE
  23. ETOPOSIDE [Interacting]
     Active Substance: ETOPOSIDE
  24. VINCRISTINE [Interacting]
     Active Substance: VINCRISTINE
     Indication: Burkitt^s lymphoma
     Route: 065
  25. VINCRISTINE [Interacting]
     Active Substance: VINCRISTINE
  26. VINCRISTINE [Interacting]
     Active Substance: VINCRISTINE
  27. VINCRISTINE [Interacting]
     Active Substance: VINCRISTINE
  28. VINDESINE [Interacting]
     Active Substance: VINDESINE
     Indication: Burkitt^s lymphoma
     Route: 065
  29. VINDESINE [Interacting]
     Active Substance: VINDESINE
  30. VINDESINE [Interacting]
     Active Substance: VINDESINE
  31. EMTRICITABINE\TENOFOVIR [Interacting]
     Active Substance: EMTRICITABINE\TENOFOVIR
     Indication: HIV infection
     Route: 065
  32. CYCLOPHOSPHAMIDE [Suspect]
     Active Substance: CYCLOPHOSPHAMIDE
     Indication: Burkitt^s lymphoma
     Route: 065
  33. CYCLOPHOSPHAMIDE [Suspect]
     Active Substance: CYCLOPHOSPHAMIDE
  34. DAUNORUBICIN [Suspect]
     Active Substance: DAUNORUBICIN
     Indication: Burkitt^s lymphoma
     Route: 065
  35. DAUNORUBICIN [Interacting]
     Active Substance: DAUNORUBICIN
     Indication: Burkitt^s lymphoma
  36. RALTEGRAVIR [Suspect]
     Active Substance: RALTEGRAVIR
     Indication: HIV infection
     Route: 065

REACTIONS (2)
  - Neutropenia [Recovered/Resolved]
  - Drug interaction [Recovered/Resolved]
